FAERS Safety Report 17924159 (Version 1)
Quarter: 2020Q2

REPORT INFORMATION
  Report Type: Spontaneous
  Country: US (occurrence: US)
  Receive Date: 20200622
  Receipt Date: 20200622
  Transmission Date: 20200714
  Serious: No
  Sender: FDA-Public Use
  Company Number: None

PATIENT
  Sex: Female

DRUGS (1)
  1. TAXOL [Suspect]
     Active Substance: PACLITAXEL
     Indication: BREAST CANCER

REACTIONS (6)
  - Fatigue [None]
  - Myalgia [None]
  - Dyspnoea [None]
  - Neuropathy peripheral [None]
  - Tachycardia [None]
  - Arthralgia [None]
